FAERS Safety Report 10065020 (Version 1)
Quarter: 2014Q2

REPORT INFORMATION
  Report Type: Report from Study
  Country: NL (occurrence: NL)
  Receive Date: 20140408
  Receipt Date: 20140408
  Transmission Date: 20141212
  Serious: Yes (Hospitalization)
  Sender: FDA-Public Use
  Company Number: NL-ABBVIE-14P-114-1222399-00

PATIENT
  Age: 49 Year
  Sex: Male
  Weight: 60 kg

DRUGS (12)
  1. HUMIRA [Suspect]
     Indication: BEHCET^S SYNDROME
     Route: 058
     Dates: start: 20100804
  2. DEPAKINE [Concomitant]
     Indication: EPILEPSY
     Dosage: 4/2 TIMES DAILY
     Route: 048
     Dates: start: 2005
  3. KEPRA [Concomitant]
     Indication: EPILEPSY
     Dosage: 4/2 TIMES DAILY
     Route: 048
     Dates: start: 2005
  4. FERROUS FUMARATE [Concomitant]
     Indication: MINERAL SUPPLEMENTATION
     Route: 048
  5. FILISIUM [Concomitant]
     Indication: EPILEPSY
     Route: 048
     Dates: start: 2005
  6. DEXAMETHASON [Concomitant]
     Indication: EPILEPSY
     Dates: start: 2005
  7. VENLAFAXINE [Concomitant]
     Indication: DEPRESSION
     Route: 048
  8. OMEPRAZOL EC [Concomitant]
     Indication: GASTRIC DISORDER
     Route: 048
  9. OMEPRAZOL EC [Concomitant]
     Indication: PROPHYLAXIS
  10. VENTOLIN [Concomitant]
     Indication: ASTHMA
     Route: 055
  11. FOSTER [Concomitant]
     Indication: ASTHMA
     Dosage: 100/6 MCG  DAILY DOSE 200/12
     Route: 055
  12. MIDAZOLAM [Concomitant]
     Indication: EPILEPSY
     Route: 045

REACTIONS (1)
  - Epilepsy [Not Recovered/Not Resolved]
